FAERS Safety Report 4738634-7 (Version None)
Quarter: 2005Q3

REPORT INFORMATION
  Report Type: 
  Country: None (occurrence: None)
  Receive Date: 20050808
  Receipt Date: 20050808
  Transmission Date: 20060218
  Serious: Yes (Other)
  Sender: FDA-Public Use
  Company Number: None

PATIENT
  Sex: Female

DRUGS (6)
  1. OXYCONTIN [Suspect]
     Dosage: 80 MG 2 PO Q 12 HOURS
     Route: 048
     Dates: start: 20050401
  2. ROXICODONE [Suspect]
     Dosage: 30 MG 1 PO Q 4 HRS
     Route: 048
  3. PERCOCET [Suspect]
     Dosage: 10/650 MG 1 TO 2 Q 4 HRS
  4. AVINZA [Suspect]
     Dosage: 20 MG 1 PO QD
     Route: 048
  5. NEURONTIN [Concomitant]
  6. TENS UNIT [Concomitant]

REACTIONS (3)
  - DRUG INEFFECTIVE [None]
  - RASH [None]
  - THERAPEUTIC RESPONSE UNEXPECTED WITH DRUG SUBSTITUTION [None]
